FAERS Safety Report 6943058-8 (Version None)
Quarter: 2010Q3

REPORT INFORMATION
  Report Type: 
  Country: None (occurrence: None)
  Receive Date: 20100826
  Receipt Date: 20100818
  Transmission Date: 20110219
  Serious: Yes (Death)
  Sender: FDA-Public Use
  Company Number: JP-WYE-H17112610

PATIENT

DRUGS (3)
  1. ANCARON [Suspect]
     Dosage: 100 MG TABLET, DOSE AND FREQUENCY UNSPECIFIED
     Route: 048
  2. AVELOX [Concomitant]
  3. ACARDI [Concomitant]

REACTIONS (2)
  - PNEUMONIA [None]
  - PNEUMONITIS [None]
